FAERS Safety Report 6604810-1 (Version None)
Quarter: 2010Q1

REPORT INFORMATION
  Report Type: 
  Country: None (occurrence: None)
  Receive Date: 20100226
  Receipt Date: 20100217
  Transmission Date: 20100710
  Serious: Yes (Hospitalization)
  Sender: FDA-Public Use
  Company Number: JP-ROCHE-686814

PATIENT
  Age: 43 Year
  Sex: Female

DRUGS (5)
  1. AVASTIN [Suspect]
     Indication: COLON CANCER
     Route: 041
  2. ELPLAT [Suspect]
     Indication: COLON CANCER
     Route: 041
  3. 5-FU [Suspect]
     Indication: COLON CANCER
     Dosage: ROUTE: INTRAVENOUS BOLUS
     Route: 041
  4. 5-FU [Suspect]
     Dosage: ROUTE: INTRAVENOUS DRIP
     Route: 041
  5. LEVOFOLINATE [Suspect]
     Indication: COLON CANCER
     Dosage: DRUG: UNKNOWNDRUG (LEVOFOLINATE CALCIUM).
     Route: 041

REACTIONS (1)
  - PERITONITIS [None]
